FAERS Safety Report 6569326-X (Version None)
Quarter: 2010Q1

REPORT INFORMATION
  Report Type: 
  Country: None (occurrence: None)
  Receive Date: 20100129
  Receipt Date: 20100111
  Transmission Date: 20100710
  Serious: Yes (Death)
  Sender: FDA-Public Use
  Company Number: 005550

PATIENT
  Age: 74 Year
  Sex: Male

DRUGS (11)
  1. NITROGLYCERIN [Suspect]
  2. ACETAMINOPHEN AND HYDROCODONE BITARTRATE [Suspect]
  3. BENZODIAZEPINE DERIVATIVES [Suspect]
  4. METOPROLOL TARTRATE [Suspect]
  5. RANOLAZINE [Suspect]
  6. SERTRALINE HCL [Suspect]
  7. HYDRALAZINE [Suspect]
  8. CARDIAC GLYCOSIDES [Suspect]
  9. PHENOBARBITAL TAB [Concomitant]
  10. ZOLPIDEM [Concomitant]
  11. LORAZEPAM [Concomitant]

REACTIONS (1)
  - COMPLETED SUICIDE [None]
